FAERS Safety Report 25595637 (Version 2)
Quarter: 2025Q4

REPORT INFORMATION
  Report Type: Spontaneous
  Country: GB (occurrence: GB)
  Receive Date: 20250723
  Receipt Date: 20251013
  Transmission Date: 20260117
  Serious: Yes (Hospitalization, Other)
  Sender: MYLAN
  Company Number: GB-MYLANLABS-2025M1061333

PATIENT
  Sex: Female

DRUGS (2)
  1. CLOZARIL [Suspect]
     Active Substance: CLOZAPINE
     Indication: Schizophrenia
     Dosage: UNK
  2. CLOZARIL [Suspect]
     Active Substance: CLOZAPINE
     Dosage: UNK UNK, BID (100MG IN THE MORNING AND 200MG AT NIGHT)
     Dates: start: 20250717

REACTIONS (3)
  - Malaise [Unknown]
  - Neutropenia [Unknown]
  - Off label use [Unknown]
